FAERS Safety Report 8690944 (Version 5)
Quarter: 2013Q1

REPORT INFORMATION
  Report Type: Spontaneous
  Country: US (occurrence: US)
  Receive Date: 20120730
  Receipt Date: 20130117
  Transmission Date: 20140127
  Serious: Yes (Hospitalization, Other)
  Sender: FDA-Public Use
  Company Number: US-BIOGENIDEC-2012BI026321

PATIENT
  Age: 44 Year
  Sex: Female

DRUGS (8)
  1. AVONEX [Suspect]
     Indication: MULTIPLE SCLEROSIS
     Route: 030
     Dates: start: 200003
  2. TYSABRI [Concomitant]
     Indication: MULTIPLE SCLEROSIS
     Route: 042
     Dates: start: 20121207
  3. BETASERON [Concomitant]
  4. COPAXONE [Concomitant]
  5. STEROIDS [Concomitant]
  6. SOLU-MEDROL [Concomitant]
  7. METHOTHEXATE [Concomitant]
  8. CHEMOTHERAPY [Concomitant]

REACTIONS (11)
  - Ear neoplasm malignant [Recovered/Resolved]
  - Central nervous system infection [Recovered/Resolved]
  - Abdominal discomfort [Recovered/Resolved]
  - Diabetes mellitus [Not Recovered/Not Resolved]
  - Hypertension [Not Recovered/Not Resolved]
  - Weight decreased [Recovered/Resolved]
  - Sinusitis [Recovered/Resolved]
  - Vitamin B12 decreased [Not Recovered/Not Resolved]
  - Vitamin D decreased [Not Recovered/Not Resolved]
  - Secondary progressive multiple sclerosis [Unknown]
  - Pain [Not Recovered/Not Resolved]
